FAERS Safety Report 5995397-5 (Version None)
Quarter: 2008Q4

REPORT INFORMATION
  Report Type: 
  Country: None (occurrence: None)
  Receive Date: 20081212
  Receipt Date: 20080919
  Transmission Date: 20090506
  Serious: No
  Sender: FDA-Public Use
  Company Number: US-ABBOTT-08P-163-0477802-00

PATIENT
  Sex: Female
  Weight: 55.842 kg

DRUGS (6)
  1. HUMIRA [Suspect]
     Indication: CROHN'S DISEASE
     Dosage: 160 MG STARTER DOSE, THEN 80 MG X1, THEN 40 MG QOW, SYRINGES
     Route: 058
     Dates: start: 20060401, end: 20060401
  2. HUMIRA [Suspect]
     Dosage: SYRINGE
  3. HUMIRA [Suspect]
     Dosage: SWITCHED TO PEN
  4. AZATHIOPRINE [Concomitant]
     Indication: CROHN'S DISEASE
     Route: 048
  5. HYDROCORTISONE RECTAL SUSPENSION [Concomitant]
     Indication: CROHN'S DISEASE
     Route: 054
  6. FOLIC ACID [Concomitant]
     Indication: VITAMIN SUPPLEMENTATION
     Route: 048

REACTIONS (1)
  - ACCIDENTAL EXPOSURE [None]
